FAERS Safety Report 9438964 (Version 1)
Quarter: 2013Q3

REPORT INFORMATION
  Report Type: Spontaneous
  Country: DE (occurrence: DE)
  Receive Date: 20130802
  Receipt Date: 20130802
  Transmission Date: 20140515
  Serious: Yes (Hospitalization)
  Sender: FDA-Public Use
  Company Number: GXKR2013DE002544

PATIENT
  Sex: Female

DRUGS (1)
  1. MTX HEXAL [Suspect]
     Dosage: 15 MG, QW
     Route: 048

REACTIONS (1)
  - Haemolysis [Unknown]
